FAERS Safety Report 7890252-8 (Version None)
Quarter: 2011Q4

REPORT INFORMATION
  Report Type: 
  Country: None (occurrence: None)
  Receive Date: 20111103
  Receipt Date: 20110808
  Transmission Date: 20120403
  Serious: No
  Sender: FDA-Public Use
  Company Number: US-AMGEN-USASP2011039989

PATIENT
  Sex: Female
  Weight: 81.633 kg

DRUGS (10)
  1. SYMBICORT [Concomitant]
  2. METHOTREXATE [Concomitant]
     Dosage: 2.5 MG, UNK
     Route: 048
  3. DICLOFENAC [Concomitant]
     Dosage: 100 MG, UNK
     Route: 048
  4. VENTOLIN HFA [Concomitant]
  5. SERTRALINE HYDROCHLORIDE [Concomitant]
     Dosage: 25 MG, UNK
     Route: 048
  6. FOLIC ACID [Concomitant]
     Dosage: 1 MG, UNK
     Route: 048
  7. LEVOTHYROXINE SODIUM [Concomitant]
     Dosage: 75 MUG, UNK
     Route: 048
  8. XANAX [Concomitant]
     Dosage: 0.5 MG, UNK
     Route: 048
  9. ENBREL [Suspect]
     Indication: PRODUCT USED FOR UNKNOWN INDICATION
     Dosage: 50 MG, QWK
     Route: 058
  10. PRILOSEC [Concomitant]
     Dosage: 10 MG, UNK
     Route: 048

REACTIONS (2)
  - INJECTION SITE ERYTHEMA [None]
  - INJECTION SITE PAIN [None]
